FAERS Safety Report 13894229 (Version 1)
Quarter: 2017Q3

REPORT INFORMATION
  Report Type: Spontaneous
  Country: US (occurrence: US)
  Receive Date: 20170822
  Receipt Date: 20170822
  Transmission Date: 20171127
  Serious: No
  Sender: FDA-Public Use
  Company Number: US-KALEO, INC-AUVI20170004

PATIENT
  Sex: Female

DRUGS (1)
  1. AUVI-Q [Suspect]
     Active Substance: EPINEPHRINE
     Indication: ACCIDENTAL EXPOSURE TO PRODUCT
     Dosage: ONCE IM OR SC

REACTIONS (2)
  - Accidental exposure to product [None]
  - No adverse event [None]
